FAERS Safety Report 9524498 (Version 6)
Quarter: 2014Q2

REPORT INFORMATION
  Report Type: Spontaneous
  Country: US (occurrence: US)
  Receive Date: 20130916
  Receipt Date: 20140505
  Transmission Date: 20141212
  Serious: No
  Sender: FDA-Public Use
  Company Number: US-PFIZER INC-2012309632

PATIENT
  Age: 70 Year
  Sex: Female
  Weight: 90.7 kg

DRUGS (4)
  1. LYRICA [Suspect]
     Indication: NEUROPATHY PERIPHERAL
     Dosage: 50 MG, 2X/DAY
     Route: 048
     Dates: start: 201301, end: 201308
  2. LYRICA [Suspect]
     Dosage: 50 MG, UNK
     Dates: start: 2013
  3. GLUCOSAMINE [Concomitant]
     Indication: ARTHRITIS
     Dosage: UNK
  4. BABY ASPIRIN [Concomitant]
     Dosage: UNK

REACTIONS (3)
  - Drug withdrawal syndrome [Unknown]
  - Pain [Unknown]
  - Neuralgia [Unknown]
